FAERS Safety Report 13062316 (Version 1)
Quarter: 2016Q4

REPORT INFORMATION
  Report Type: Spontaneous
  Country: US (occurrence: US)
  Receive Date: 20161226
  Receipt Date: 20161226
  Transmission Date: 20170207
  Serious: Yes (Hospitalization)
  Sender: FDA-Public Use
  Company Number: US-US WORLDMEDS, LLC-USW201612-000927

PATIENT
  Sex: Male

DRUGS (5)
  1. LYRICA [Suspect]
     Active Substance: PREGABALIN
     Indication: HEADACHE
  2. LYRICA [Suspect]
     Active Substance: PREGABALIN
     Indication: HEAD INJURY
     Route: 048
  3. WARFARIN [Concomitant]
     Active Substance: WARFARIN
     Indication: THROMBOSIS
  4. NADOLOL. [Suspect]
     Active Substance: NADOLOL
     Indication: INSOMNIA
  5. NADOLOL. [Suspect]
     Active Substance: NADOLOL
     Indication: HEADACHE

REACTIONS (2)
  - Product use issue [Unknown]
  - Road traffic accident [Unknown]
